FAERS Safety Report 5290726-2 (Version None)
Quarter: 2007Q2

REPORT INFORMATION
  Report Type: 
  Country: None (occurrence: None)
  Receive Date: 20070405
  Receipt Date: 20070405
  Transmission Date: 20071010
  Serious: Yes (Hospitalization)
  Sender: FDA-Public Use
  Company Number: None

PATIENT
  Age: 65 Year
  Sex: Female

DRUGS (5)
  1. PEMETREXED [Suspect]
     Indication: NON-SMALL CELL LUNG CANCER
     Dosage: 250MG/M2, IV
     Route: 042
     Dates: start: 20070216
  2. SORAFENIB [Suspect]
     Dosage: 400MG BID PO
     Route: 048
     Dates: start: 20070216, end: 20070220
  3. MULTI-VITAMIN [Concomitant]
  4. VICODIN [Concomitant]
  5. DEXAMETHASONE [Concomitant]

REACTIONS (6)
  - ABDOMINAL PAIN [None]
  - BACTERIA STOOL IDENTIFIED [None]
  - COLITIS [None]
  - DIARRHOEA [None]
  - NAUSEA [None]
  - WHITE BLOOD CELL COUNT INCREASED [None]
